FAERS Safety Report 25301910 (Version 1)
Quarter: 2025Q2

REPORT INFORMATION
  Report Type: Spontaneous
  Country: US (occurrence: US)
  Receive Date: 20250512
  Receipt Date: 20250512
  Transmission Date: 20250716
  Serious: Yes (Hospitalization)
  Sender: SANDOZ
  Company Number: US-SANDOZ-SDZ2023US013202

PATIENT

DRUGS (1)
  1. TIMOLOL [Suspect]
     Active Substance: TIMOLOL
     Indication: Product used for unknown indication
     Route: 065

REACTIONS (5)
  - Hospitalisation [Unknown]
  - Memory impairment [Unknown]
  - Product dose omission issue [Unknown]
  - Product container seal issue [Unknown]
  - Product packaging issue [Unknown]
